FAERS Safety Report 17402164 (Version 3)
Quarter: 2020Q2

REPORT INFORMATION
  Report Type: Spontaneous
  Country: US (occurrence: US)
  Receive Date: 20200211
  Receipt Date: 20200626
  Transmission Date: 20200713
  Serious: No
  Sender: FDA-Public Use
  Company Number: US-PFIZER INC-2020057468

PATIENT
  Age: 90 Year
  Sex: Female

DRUGS (2)
  1. VYNDAQEL [Suspect]
     Active Substance: TAFAMIDIS MEGLUMINE
     Dosage: 20 MG
     Dates: start: 20191218
  2. VYNDAQEL [Suspect]
     Active Substance: TAFAMIDIS MEGLUMINE
     Dosage: 20 MG
     Dates: start: 20200523

REACTIONS (3)
  - Sinusitis [Unknown]
  - Urinary tract infection [Unknown]
  - Somnolence [Unknown]
